FAERS Safety Report 4600049-X (Version None)
Quarter: 2005Q1

REPORT INFORMATION
  Report Type: 
  Country: None (occurrence: None)
  Receive Date: 20050307
  Receipt Date: 20050223
  Transmission Date: 20050727
  Serious: Yes (Hospitalization)
  Sender: FDA-Public Use
  Company Number: NL-BRISTOL-MYERS SQUIBB COMPANY-12874228

PATIENT
  Age: 39 Year
  Sex: Female

DRUGS (3)
  1. KENACORT-A INJ 40 MG/ML [Suspect]
     Indication: PERIARTHRITIS
     Route: 014
     Dates: start: 20041112, end: 20041112
  2. XYLOCAINE [Interacting]
     Indication: PERIARTHRITIS
     Route: 014
     Dates: start: 20041112, end: 20041112
  3. METOPROLOL TARTRATE [Concomitant]
     Route: 048
     Dates: start: 20010214

REACTIONS (2)
  - ANAPHYLACTIC REACTION [None]
  - DRUG INTERACTION [None]
